FAERS Safety Report 5871327-1 (Version None)
Quarter: 2008Q3

REPORT INFORMATION
  Report Type: 
  Country: None (occurrence: None)
  Receive Date: 20080904
  Receipt Date: 20080904
  Transmission Date: 20090109
  Serious: No
  Sender: FDA-Public Use
  Company Number: None

PATIENT
  Age: 39 Year
  Sex: Male
  Weight: 76.6579 kg

DRUGS (1)
  1. BUPROPION HCL [Suspect]
     Dosage: 300MG ONE DAILY PO
     Route: 048
     Dates: start: 20071115

REACTIONS (4)
  - CONDITION AGGRAVATED [None]
  - DEPRESSION [None]
  - HYPOSOMNIA [None]
  - PSYCHOMOTOR RETARDATION [None]
